FAERS Safety Report 9694935 (Version 1)
Quarter: 2013Q4

REPORT INFORMATION
  Report Type: Spontaneous
  Country: US (occurrence: US)
  Receive Date: 20131119
  Receipt Date: 20131119
  Transmission Date: 20140711
  Serious: No
  Sender: FDA-Public Use
  Company Number: US-PFIZER INC-2013328399

PATIENT
  Age: 45 Year
  Sex: Female
  Weight: 159 kg

DRUGS (1)
  1. NEURONTIN [Suspect]
     Indication: BACK PAIN
     Dosage: 300 MG, 3X/DAY
     Dates: start: 20131101

REACTIONS (2)
  - Somnolence [Unknown]
  - Drug ineffective [Unknown]
